FAERS Safety Report 8553086-7 (Version None)
Quarter: 2012Q3

REPORT INFORMATION
  Report Type: 
  Country: None (occurrence: None)
  Receive Date: 20120731
  Receipt Date: 20120719
  Transmission Date: 20120928
  Serious: Yes (Death)
  Sender: FDA-Public Use
  Company Number: TN-SANOFI-AVENTIS-2012SA051557

PATIENT
  Age: 84 Year
  Sex: Male

DRUGS (9)
  1. TENSOPRIL [Concomitant]
     Dates: end: 20120609
  2. PLAVIX [Suspect]
     Indication: STENT PLACEMENT
     Route: 048
     Dates: start: 20120220, end: 20120609
  3. ATORVASTATIN [Concomitant]
     Dates: end: 20120609
  4. ASPEGIC 1000 [Concomitant]
     Dates: end: 20120609
  5. INSULIN [Concomitant]
     Dates: end: 20120609
  6. CORVASAL [Concomitant]
     Dates: end: 20120609
  7. SPIRONOLACTONE [Concomitant]
     Dates: end: 20120609
  8. LASIX [Concomitant]
     Dates: end: 20120609
  9. PLAVIX [Suspect]
     Indication: MYOCARDIAL INFARCTION
     Route: 048
     Dates: start: 20120220, end: 20120609

REACTIONS (1)
  - ACUTE PULMONARY OEDEMA [None]
